FAERS Safety Report 7406568-5 (Version None)
Quarter: 2011Q2

REPORT INFORMATION
  Report Type: 
  Country: None (occurrence: None)
  Receive Date: 20110411
  Receipt Date: 20110405
  Transmission Date: 20111010
  Serious: Yes (Other)
  Sender: FDA-Public Use
  Company Number: GB-PFIZER INC-2010113112

PATIENT
  Age: 40 Year
  Sex: Female

DRUGS (2)
  1. DEPO-PROVERA [Suspect]
     Indication: ENDOMETRIOSIS
  2. DEPO-PROVERA [Suspect]
     Indication: OFF LABEL USE
     Dosage: SINGLE INJECTION
     Dates: start: 20100728

REACTIONS (12)
  - PELVIC PAIN [None]
  - MUSCLE SPASMS [None]
  - MENSTRUAL DISORDER [None]
  - ARTHRALGIA [None]
  - HAIR TEXTURE ABNORMAL [None]
  - HEADACHE [None]
  - MENORRHAGIA [None]
  - BONE PAIN [None]
  - ALOPECIA [None]
  - MALAISE [None]
  - ANAEMIA [None]
  - HOT FLUSH [None]
